FAERS Safety Report 16555913 (Version 2)
Quarter: 2019Q3

REPORT INFORMATION
  Report Type: Spontaneous
  Country: FR (occurrence: FR)
  Receive Date: 20190710
  Receipt Date: 20190920
  Transmission Date: 20191004
  Serious: Yes (Hospitalization, Other)
  Sender: FDA-Public Use
  Company Number: FR-GILEAD-2019-0417466

PATIENT
  Age: 35 Year
  Sex: Male

DRUGS (9)
  1. GENVOYA [Suspect]
     Active Substance: COBICISTAT\ELVITEGRAVIR\EMTRICITABINE\TENOFOVIR ALAFENAMIDE FUMARATE
     Dosage: UNK
     Route: 065
     Dates: start: 20190605, end: 20190625
  2. XANAX [Concomitant]
     Active Substance: ALPRAZOLAM
  3. GENVOYA [Suspect]
     Active Substance: COBICISTAT\ELVITEGRAVIR\EMTRICITABINE\TENOFOVIR ALAFENAMIDE FUMARATE
     Dosage: UNK
     Route: 065
     Dates: start: 20190702, end: 20190703
  4. ALPRAZOLAM. [Concomitant]
     Active Substance: ALPRAZOLAM
  5. GENVOYA [Suspect]
     Active Substance: COBICISTAT\ELVITEGRAVIR\EMTRICITABINE\TENOFOVIR ALAFENAMIDE FUMARATE
     Indication: HIV INFECTION
     Dosage: UNK
     Route: 065
     Dates: start: 2017, end: 201904
  6. CITALOPRAM [Concomitant]
     Active Substance: CITALOPRAM HYDROBROMIDE
     Indication: DEPRESSION
  7. VANCOMYCINE [VANCOMYCIN] [Concomitant]
     Active Substance: VANCOMYCIN
     Dosage: UNK
     Dates: start: 201906
  8. BIKTARVY [Suspect]
     Active Substance: BICTEGRAVIR SODIUM\EMTRICITABINE\TENOFOVIR ALAFENAMIDE FUMARATE
     Dosage: UNK
     Route: 065
     Dates: start: 20190704
  9. BIKTARVY [Suspect]
     Active Substance: BICTEGRAVIR SODIUM\EMTRICITABINE\TENOFOVIR ALAFENAMIDE FUMARATE
     Indication: HIV INFECTION
     Dosage: UNK
     Route: 065
     Dates: start: 20190626, end: 20190701

REACTIONS (5)
  - Emotional distress [Unknown]
  - Blood HIV RNA increased [Unknown]
  - Hepatitis alcoholic [Recovered/Resolved]
  - Treatment noncompliance [Recovered/Resolved]
  - Colitis [Recovered/Resolved]

NARRATIVE: CASE EVENT DATE: 2019
